FAERS Safety Report 10761102 (Version 6)
Quarter: 2017Q2

REPORT INFORMATION
  Report Type: Spontaneous
  Country: JP (occurrence: JP)
  Receive Date: 20150204
  Receipt Date: 20170524
  Transmission Date: 20170829
  Serious: Yes (Death, Hospitalization)
  Sender: FDA-Public Use
  Company Number: JP-MALLINCKRODT-T201501002

PATIENT
  Age: 54 Year
  Sex: Male
  Weight: 55 kg

DRUGS (42)
  1. TAPENTA [Concomitant]
     Active Substance: TAPENTADOL HYDROCHLORIDE
     Indication: ANALGESIC THERAPY
     Dosage: 100 MG
     Route: 048
     Dates: start: 20160307, end: 20160508
  2. RIVOTRIL [Concomitant]
     Active Substance: CLONAZEPAM
     Dosage: 1 MG
     Route: 048
     Dates: end: 20150628
  3. SODIUM PICOSULFATE [Concomitant]
     Active Substance: SODIUM PICOSULFATE
     Dosage: UNK
     Route: 048
     Dates: end: 20150628
  4. METHADONE [Suspect]
     Active Substance: METHADONE HYDROCHLORIDE
     Dosage: 5 MG (15 MG DAILY DOSE)
     Route: 048
     Dates: start: 20141110, end: 20141117
  5. METHADONE [Suspect]
     Active Substance: METHADONE HYDROCHLORIDE
     Dosage: 5 MG (10 MG DAILY DOSE)
     Route: 048
     Dates: start: 20150123, end: 20150125
  6. METHADONE [Suspect]
     Active Substance: METHADONE HYDROCHLORIDE
     Dosage: 10 MG (20 MG DAILY DOSE)
     Route: 048
     Dates: start: 20150603, end: 20150628
  7. OXINORM [Concomitant]
     Active Substance: OXYCODONE HYDROCHLORIDE
     Dosage: 2.5-5 MG, P.R.N.
     Route: 048
     Dates: start: 20141106
  8. LOXOPROFEN [Concomitant]
     Active Substance: LOXOPROFEN
     Dosage: 180 MG
     Route: 048
     Dates: end: 20150625
  9. TAKEPRON [Concomitant]
     Active Substance: LANSOPRAZOLE
     Indication: PROPHYLAXIS
     Dosage: 15 MG, (UNK)
     Route: 048
     Dates: start: 20131010, end: 20160508
  10. BROTIZOLAM [Concomitant]
     Active Substance: BROTIZOLAM
     Dosage: 0.25 MG
     Route: 048
     Dates: end: 20150417
  11. QUETIAPINE. [Concomitant]
     Active Substance: QUETIAPINE
     Dosage: 2.5 MG
     Route: 048
     Dates: end: 20150417
  12. LOXONIN [Concomitant]
     Active Substance: LOXOPROFEN SODIUM
     Indication: ANALGESIC THERAPY
     Dosage: 180 MG
     Route: 048
     Dates: start: 20150626, end: 20150628
  13. METHADONE [Suspect]
     Active Substance: METHADONE HYDROCHLORIDE
     Dosage: (20 MG DAILY DOSE)
     Route: 048
     Dates: start: 20150511, end: 20150527
  14. METHADONE [Suspect]
     Active Substance: METHADONE HYDROCHLORIDE
     Dosage: 5 MG (20 MG DAILY DOSE)
     Route: 048
     Dates: start: 20160109, end: 20160508
  15. MAGMITT [Concomitant]
     Active Substance: MAGNESIUM OXIDE
     Dosage: 990 MG
     Route: 048
     Dates: end: 20160508
  16. SULPIRIDE [Concomitant]
     Active Substance: SULPIRIDE
     Dosage: 50 MG
     Route: 048
     Dates: end: 20150628
  17. LANSOPRAZOLE. [Concomitant]
     Active Substance: LANSOPRAZOLE
     Dosage: 15 MG
     Route: 048
     Dates: end: 20150625
  18. WARFARIN [Concomitant]
     Active Substance: WARFARIN
     Dosage: 3 MG
     Route: 048
     Dates: end: 20150628
  19. MAGMITT [Concomitant]
     Active Substance: MAGNESIUM OXIDE
     Dosage: 1980 MG
     Route: 048
     Dates: end: 20150628
  20. SULPIRIDE [Concomitant]
     Active Substance: SULPIRIDE
     Dosage: 50 MG
     Route: 048
     Dates: end: 20150417
  21. CYMBALTA [Concomitant]
     Active Substance: DULOXETINE HYDROCHLORIDE
     Indication: ANALGESIC THERAPY
     Dosage: 50 MG
     Route: 048
     Dates: start: 20160120, end: 20160307
  22. BETAHISTINE MESILATE [Concomitant]
     Active Substance: BETAHISTINE MESILATE
     Dosage: 18 MG
     Route: 048
     Dates: end: 20150628
  23. METHADONE [Suspect]
     Active Substance: METHADONE HYDROCHLORIDE
     Dosage: 5 MG (15 MG DAILY DOSE)
     Route: 048
     Dates: start: 20150528, end: 20150602
  24. BROTIZOLAM [Concomitant]
     Active Substance: BROTIZOLAM
     Dosage: 0.25 MG
     Route: 048
     Dates: end: 20150628
  25. QUETIAPINE. [Concomitant]
     Active Substance: QUETIAPINE
     Dosage: 12.5 MG
     Route: 048
     Dates: end: 20150628
  26. DEPAS [Concomitant]
     Active Substance: ETIZOLAM
     Dosage: 1 MG
     Route: 048
     Dates: end: 20160508
  27. METHADONE [Suspect]
     Active Substance: METHADONE HYDROCHLORIDE
     Dosage: 5 MG (15 MG DAILY DOSE)
     Route: 048
     Dates: start: 20150126, end: 20150510
  28. METHADONE [Suspect]
     Active Substance: METHADONE HYDROCHLORIDE
     Dosage: 5 MG (10 MG DAILY DOSE)
     Route: 048
     Dates: start: 20150815, end: 20160108
  29. WARFARIN [Concomitant]
     Active Substance: WARFARIN
     Dosage: 3.5 MG
     Route: 048
     Dates: start: 20121203, end: 20160508
  30. BAYASPIRIN [Concomitant]
     Active Substance: ASPIRIN
     Dosage: 100 MG
     Route: 048
     Dates: end: 20150628
  31. TAKEPRON [Concomitant]
     Active Substance: LANSOPRAZOLE
     Dosage: 15 MG, (UNK)
     Route: 048
     Dates: start: 20150626, end: 20150628
  32. LYRICA [Concomitant]
     Active Substance: PREGABALIN
     Dosage: 300 MG
     Route: 048
     Dates: start: 20111207, end: 20141112
  33. RIVOTRIL [Concomitant]
     Active Substance: CLONAZEPAM
     Dosage: 1 MG
     Route: 048
     Dates: end: 20160508
  34. URSO [Concomitant]
     Active Substance: URSODIOL
     Dosage: 300 MG
     Route: 048
     Dates: start: 20150626, end: 20150628
  35. LOXOPROFEN [Concomitant]
     Active Substance: LOXOPROFEN
     Indication: ANALGESIC THERAPY
     Dosage: 120 MG
     Route: 048
     Dates: start: 20111207, end: 20160508
  36. BAYASPIRIN [Concomitant]
     Active Substance: ASPIRIN
     Dosage: 100 MG
     Route: 048
     Dates: start: 20121203, end: 20160508
  37. METHADONE [Suspect]
     Active Substance: METHADONE HYDROCHLORIDE
     Indication: CANCER PAIN
     Dosage: 5 MG (10 MG DAILY DOSE)
     Route: 048
     Dates: start: 20141107, end: 20141109
  38. METHADONE [Suspect]
     Active Substance: METHADONE HYDROCHLORIDE
     Dosage: 5 MG (15 MG DAILY DOSE)
     Route: 048
     Dates: start: 20150629, end: 20150814
  39. URSODEOXYCHOLIC ACID [Concomitant]
     Active Substance: URSODIOL
     Dosage: 300 MG
     Route: 048
     Dates: start: 20100531, end: 20160508
  40. URSODEOXYCHOLIC ACID [Concomitant]
     Active Substance: URSODIOL
     Dosage: 300 MG
     Route: 048
     Dates: end: 20150625
  41. REMERON [Concomitant]
     Active Substance: MIRTAZAPINE
     Dosage: 15 MG
     Route: 048
     Dates: end: 20150417
  42. REMERON [Concomitant]
     Active Substance: MIRTAZAPINE
     Dosage: 1 DF
     Route: 048
     Dates: end: 20150628

REACTIONS (7)
  - Alanine aminotransferase increased [Recovered/Resolved]
  - Haematuria [Recovering/Resolving]
  - Dizziness [Unknown]
  - Rectosigmoid cancer recurrent [Fatal]
  - Depression [Recovering/Resolving]
  - Aspartate aminotransferase increased [Recovered/Resolved]
  - Somnolence [Recovering/Resolving]

NARRATIVE: CASE EVENT DATE: 20141113
